FAERS Safety Report 15632818 (Version 1)
Quarter: 2018Q4

REPORT INFORMATION
  Report Type: Spontaneous
  Country: US (occurrence: US)
  Receive Date: 20181119
  Receipt Date: 20181119
  Transmission Date: 20190205
  Serious: Yes (Death)
  Sender: FDA-Public Use
  Company Number: None

PATIENT
  Age: 59 Year
  Sex: Male

DRUGS (8)
  1. DIGOXIN 0.125MG [Concomitant]
  2. FOLIC ACID 1MG [Concomitant]
  3. METOPROL 50MG [Concomitant]
  4. BENZTROPINE 0.5MG [Concomitant]
  5. LEXAPRO [Concomitant]
     Active Substance: ESCITALOPRAM OXALATE
  6. INVEGA TRINZA [Suspect]
     Active Substance: PALIPERIDONE PALMITATE
     Indication: SCHIZOAFFECTIVE DISORDER BIPOLAR TYPE
     Dosage: OTHER FREQUENCY:EVERY 3 MONTHS;?
     Route: 030
     Dates: start: 20180426, end: 20181114
  7. LASIX 20MG [Concomitant]
  8. B1 250MG [Concomitant]

REACTIONS (1)
  - Death [None]

NARRATIVE: CASE EVENT DATE: 20181114
